FAERS Safety Report 5195044-9 (Version None)
Quarter: 2006Q4

REPORT INFORMATION
  Report Type: 
  Country: None (occurrence: None)
  Receive Date: 20061229
  Receipt Date: 20061220
  Transmission Date: 20070319
  Serious: Yes (Other)
  Sender: FDA-Public Use
  Company Number: JP-JNJFOC-20061206620

PATIENT
  Age: 38 Year
  Sex: Male

DRUGS (1)
  1. RISPERDAL [Suspect]
     Indication: SCHIZOPHRENIA
     Route: 048

REACTIONS (4)
  - DEPRESSED LEVEL OF CONSCIOUSNESS [None]
  - GLOSSOPTOSIS [None]
  - RESPIRATORY DISORDER [None]
  - RHABDOMYOLYSIS [None]
